FAERS Safety Report 5369154-7 (Version None)
Quarter: 2007Q2

REPORT INFORMATION
  Report Type: 
  Country: None (occurrence: None)
  Receive Date: 20070625
  Receipt Date: 20070104
  Transmission Date: 20071010
  Serious: No
  Sender: FDA-Public Use
  Company Number: US-ASTRAZENECA-2007UW00210

PATIENT
  Age: 70 Year
  Sex: Male
  Weight: 80.7 kg

DRUGS (1)
  1. CRESTOR [Suspect]
     Indication: BLOOD CHOLESTEROL INCREASED
     Route: 048
     Dates: start: 20061101

REACTIONS (4)
  - BLOOD PRESSURE INCREASED [None]
  - CARDIAC FLUTTER [None]
  - DIZZINESS [None]
  - HEADACHE [None]
